FAERS Safety Report 16531383 (Version 5)
Quarter: 2019Q4

REPORT INFORMATION
  Report Type: Report from Study
  Country: US (occurrence: US)
  Receive Date: 20190704
  Receipt Date: 20191016
  Transmission Date: 20200122
  Serious: No
  Sender: FDA-Public Use
  Company Number: PHEH2019US028048

PATIENT
  Sex: Female

DRUGS (1)
  1. COSENTYX [Suspect]
     Active Substance: SECUKINUMAB
     Indication: PSORIASIS
     Dosage: 300 MG, QMO
     Route: 058
     Dates: start: 201811

REACTIONS (17)
  - Dizziness [Recovering/Resolving]
  - Wound haemorrhage [Recovered/Resolved]
  - Anxiety [Recovering/Resolving]
  - Upper respiratory tract congestion [Unknown]
  - Impaired healing [Recovered/Resolved]
  - Rhinorrhoea [Recovering/Resolving]
  - Psoriasis [Recovering/Resolving]
  - Malaise [Unknown]
  - Decreased immune responsiveness [Unknown]
  - Wound [Recovered/Resolved]
  - Nasopharyngitis [Unknown]
  - Hyperhidrosis [Recovering/Resolving]
  - Oral herpes [Recovering/Resolving]
  - Hypoacusis [Recovering/Resolving]
  - Contusion [Recovering/Resolving]
  - Nausea [Recovering/Resolving]
  - Body temperature increased [Recovering/Resolving]
